FAERS Safety Report 5839342-1 (Version None)
Quarter: 2008Q3

REPORT INFORMATION
  Report Type: 
  Country: None (occurrence: None)
  Receive Date: 20080808
  Receipt Date: 20080729
  Transmission Date: 20090109
  Serious: Yes (Other)
  Sender: FDA-Public Use
  Company Number: FR-PFIZER INC-2008065792

PATIENT
  Age: 76 Year
  Sex: Female

DRUGS (3)
  1. ATARAX [Suspect]
  2. PLAVIX [Suspect]
     Dates: start: 20080320, end: 20080322
  3. MINISINTROM [Suspect]

REACTIONS (3)
  - DRUG DISPENSING ERROR [None]
  - MEDICATION ERROR [None]
  - WOUND HAEMORRHAGE [None]
